FAERS Safety Report 8589038 (Version 2)
Quarter: 2013Q3

REPORT INFORMATION
  Report Type: Spontaneous
  Country: US (occurrence: US)
  Receive Date: 20120531
  Receipt Date: 20130821
  Transmission Date: 20140515
  Serious: Yes (Death, Hospitalization, Other)
  Sender: FDA-Public Use
  Company Number: US-FRI-1000030861

PATIENT
  Age: 0 Year
  Sex: Male

DRUGS (19)
  1. LEXAPRO [Suspect]
     Indication: DEPRESSION
     Dosage: 10 MG
     Dates: start: 20080104, end: 20080115
  2. LEXAPRO [Suspect]
     Dosage: 20 MG
     Dates: start: 20080115, end: 2008
  3. LEXAPRO [Suspect]
     Dosage: 20 MG
     Dates: start: 2008, end: 2009
  4. LEXAPRO [Suspect]
     Dosage: 10 MG
     Dates: start: 20091230, end: 2010
  5. LEXAPRO [Suspect]
     Dosage: 10 MG
     Dates: start: 20100706, end: 2010
  6. LEXAPRO [Suspect]
     Dosage: 10 MG
     Dates: start: 20110516
  7. CITALOPRAM [Concomitant]
     Indication: DEPRESSION
     Dosage: 40 MG
     Dates: start: 20080123, end: 2008
  8. CITALOPRAM [Concomitant]
     Dosage: 40 MG
     Dates: start: 2010
  9. ACIPHEX [Concomitant]
     Dosage: 20 MG
  10. TRINESSA [Concomitant]
     Indication: CONTRACEPTION
  11. ORTHO TRI-CYCLEN [Concomitant]
     Indication: CONTRACEPTION
  12. ADVIL [Concomitant]
     Dosage: AS NEEDED
  13. VICODIN [Concomitant]
     Dosage: 500/5 MG DAILY AS NEEDED
  14. NEXIUM [Concomitant]
     Indication: GASTROOESOPHAGEAL REFLUX DISEASE
     Dosage: 20 MG
     Route: 048
  15. PRENATAL VITAMIN [Concomitant]
     Indication: PREGNANCY
  16. PERCOCET [Concomitant]
     Indication: MIGRAINE
     Dosage: 5/325 MG 1-2 TABS AS NEEDED
     Route: 048
  17. DOCUSATE [Concomitant]
     Dosage: 100 MG
     Route: 048
  18. AMITRIPTYLINE [Concomitant]
     Dosage: 10 MG
     Route: 048
  19. FOLIC ACID [Concomitant]
     Indication: PREGNANCY

REACTIONS (27)
  - Double outlet right ventricle [Fatal]
  - Atrial septal defect [Fatal]
  - Fallot^s tetralogy [Fatal]
  - Cardiomegaly [Fatal]
  - Pulmonary hypertension [Fatal]
  - Cardiogenic shock [Fatal]
  - Cardiac failure congestive [Fatal]
  - Jaundice neonatal [Unknown]
  - Atrioventricular block complete [Recovered/Resolved]
  - Nodal rhythm [Recovered/Resolved]
  - Multi-organ failure [Recovered/Resolved]
  - Brain injury [Recovered/Resolved]
  - Clostridium difficile infection [Unknown]
  - Coagulopathy [Recovered/Resolved]
  - Serratia infection [Unknown]
  - Pleural effusion [Recovered/Resolved]
  - Acute respiratory failure [Recovered/Resolved]
  - Diarrhoea haemorrhagic [Unknown]
  - Urinary tract infection [Unknown]
  - Bronchiolitis [Unknown]
  - Cerebrovascular accident [Recovered/Resolved]
  - Otitis media [Unknown]
  - Conjunctivitis [Unknown]
  - Oral candidiasis [Recovered/Resolved]
  - Skin disorder [Unknown]
  - Vomiting [Unknown]
  - Feeding disorder neonatal [Unknown]
